FAERS Safety Report 7527560-6 (Version None)
Quarter: 2011Q2

REPORT INFORMATION
  Report Type: 
  Country: None (occurrence: None)
  Receive Date: 20110527
  Receipt Date: 20110512
  Transmission Date: 20111010
  Serious: No
  Sender: FDA-Public Use
  Company Number: THQ2011A02368

PATIENT
  Sex: Male

DRUGS (1)
  1. LANSOPRAZOLE [Suspect]
     Indication: PRODUCT USED FOR UNKNOWN INDICATION
     Dosage: 15 MG (15 MG,1 IN 1 D) PER ORAL
     Route: 048

REACTIONS (3)
  - RENAL CANCER [None]
  - DRY MOUTH [None]
  - DENTAL DISCOMFORT [None]
